FAERS Safety Report 12180067 (Version 1)
Quarter: 2016Q1

REPORT INFORMATION
  Report Type: Spontaneous
  Country: US (occurrence: None)
  Receive Date: 20160314
  Receipt Date: 20160314
  Transmission Date: 20160526
  Serious: Yes (Life-Threatening)
  Sender: FDA-Public Use
  Company Number: None

PATIENT
  Age: 12 Year
  Sex: Female
  Weight: 86.18 kg

DRUGS (4)
  1. MONTELUKAST [Suspect]
     Active Substance: MONTELUKAST SODIUM
     Indication: ASTHMA
     Dosage: TAKE 0.5 TABLET (5 MG) EVERY E ONCE DAILY TAKEN BY MOUTH
     Route: 048
     Dates: start: 20151130, end: 20151210
  2. ALBUTEROL. [Concomitant]
     Active Substance: ALBUTEROL
  3. FLOVENT HFA [Concomitant]
     Active Substance: FLUTICASONE PROPIONATE
  4. CETIRIZINE (OTC) [Concomitant]

REACTIONS (6)
  - Scar [None]
  - Anger [None]
  - Depression [None]
  - Intentional self-injury [None]
  - Suicidal ideation [None]
  - Aggression [None]

NARRATIVE: CASE EVENT DATE: 20151210
